FAERS Safety Report 11400642 (Version 1)
Quarter: 2015Q3

REPORT INFORMATION
  Report Type: Spontaneous
  Country: NL (occurrence: NL)
  Receive Date: 20150820
  Receipt Date: 20150820
  Transmission Date: 20151125
  Serious: Yes (Hospitalization, Other)
  Sender: FDA-Public Use
  Company Number: NL-PFIZER INC-2015265008

PATIENT
  Age: 64 Year
  Sex: Female
  Weight: 68 kg

DRUGS (1)
  1. DOXAZOSIN MESILATE [Suspect]
     Active Substance: DOXAZOSIN MESYLATE
     Dosage: 8 MG, 1X/DAY
     Route: 048
     Dates: start: 20141014

REACTIONS (9)
  - Liver function test abnormal [Recovering/Resolving]
  - Blood glucose fluctuation [Recovering/Resolving]
  - Balance disorder [Recovering/Resolving]
  - Head discomfort [Recovering/Resolving]
  - Malaise [Recovering/Resolving]
  - Respiratory tract infection [Recovering/Resolving]
  - Arrhythmia [Recovering/Resolving]
  - Low density lipoprotein increased [Recovering/Resolving]
  - Visual impairment [Recovering/Resolving]

NARRATIVE: CASE EVENT DATE: 20141213
